FAERS Safety Report 18962357 (Version 1)
Quarter: 2021Q1

REPORT INFORMATION
  Report Type: Spontaneous
  Country: US (occurrence: US)
  Receive Date: 20210303
  Receipt Date: 20210303
  Transmission Date: 20210420
  Serious: No
  Sender: FDA-Public Use
  Company Number: US-ASTRAZENECA-2021A060659

PATIENT
  Sex: Female

DRUGS (1)
  1. BRILINTA [Suspect]
     Active Substance: TICAGRELOR
     Route: 048

REACTIONS (5)
  - Dyspnoea [Unknown]
  - Depressed mood [Unknown]
  - Rash [Unknown]
  - Feeling abnormal [Unknown]
  - Anxiety [Unknown]
